FAERS Safety Report 4647791-2 (Version None)
Quarter: 2005Q2

REPORT INFORMATION
  Report Type: 
  Country: None (occurrence: None)
  Receive Date: 20050426
  Receipt Date: 20050414
  Transmission Date: 20051028
  Serious: Yes (Hospitalization)
  Sender: FDA-Public Use
  Company Number: 04P-167-0272647-00

PATIENT
  Age: 77 Year
  Sex: Female
  Weight: 74 kg

DRUGS (16)
  1. HUMIRA [Suspect]
     Indication: RHEUMATOID ARTHRITIS
     Dosage: 40 MG, 1 IN 2 WK,
     Dates: start: 20040517, end: 20040902
  2. ACETAMINOPHEN W/ CODEINE [Concomitant]
  3. ACENOCOUMAROL [Concomitant]
  4. DIGOXIN [Concomitant]
  5. FUROSEMIDE [Concomitant]
  6. DOSULEPIN [Concomitant]
  7. DIAZEPAM [Concomitant]
  8. METFORMIN HCL [Concomitant]
  9. CALCIUM CARBONATE [Concomitant]
  10. METHOTREXATE [Concomitant]
  11. FOLIC ACID [Concomitant]
  12. INSULIN INJECTION, BIPHASIC [Concomitant]
  13. HUMIRA (COMMERCIAL) [Concomitant]
  14. ISONIAZID [Concomitant]
  15. PYRIDOXINE HCL [Concomitant]
  16. GLICLAZIDE [Concomitant]

REACTIONS (13)
  - ASTHENIA [None]
  - CARDIOMEGALY [None]
  - CHRONIC OBSTRUCTIVE PULMONARY DISEASE [None]
  - EAR PAIN [None]
  - HEART RATE IRREGULAR [None]
  - LUNG DISORDER [None]
  - OEDEMA PERIPHERAL [None]
  - ORAL INTAKE REDUCED [None]
  - OROPHARYNGEAL CANDIDIASIS [None]
  - PHARYNGEAL ULCERATION [None]
  - PHARYNGITIS [None]
  - TUBERCULOSIS [None]
  - WEIGHT DECREASED [None]
